FAERS Safety Report 4563716-2 (Version None)
Quarter: 2005Q1

REPORT INFORMATION
  Report Type: 
  Country: None (occurrence: None)
  Receive Date: 20050121
  Receipt Date: 20050114
  Transmission Date: 20050727
  Serious: Yes (Other)
  Sender: FDA-Public Use
  Company Number: 200510071BWH

PATIENT
  Age: 56 Year
  Sex: Male

DRUGS (3)
  1. TRASYLOL [Suspect]
     Indication: AORTIC VALVE REPAIR
     Dates: start: 20031219
  2. TRASYLOL [Suspect]
     Indication: ATRIAL SEPTAL DEFECT
     Dates: start: 20031219
  3. TRASYLOL [Suspect]
     Indication: VENTRICULAR ASSIST DEVICE INSERTION
     Dates: start: 20031219

REACTIONS (2)
  - BLOOD PRESSURE DECREASED [None]
  - CARDIAC PROCEDURE COMPLICATION [None]
